FAERS Safety Report 6274107-0 (Version None)
Quarter: 2009Q3

REPORT INFORMATION
  Report Type: 
  Country: None (occurrence: None)
  Receive Date: 20090720
  Receipt Date: 20090714
  Transmission Date: 20100115
  Serious: Yes (Other)
  Sender: FDA-Public Use
  Company Number: PHHY2009AR24879

PATIENT
  Age: 80 Year
  Sex: Male

DRUGS (3)
  1. GALVUS MET [Suspect]
     Indication: TYPE 2 DIABETES MELLITUS
     Dosage: 2 DF, BID
     Route: 048
     Dates: start: 20090101, end: 20090616
  2. NIMODIPINE [Concomitant]
     Dosage: 30 MG DAILY
  3. OMEPRAZOLE [Concomitant]
     Dosage: 20 MG DAILY

REACTIONS (12)
  - ALANINE AMINOTRANSFERASE INCREASED [None]
  - ASPARTATE AMINOTRANSFERASE INCREASED [None]
  - ASTHENIA [None]
  - BLOOD ALKALINE PHOSPHATASE INCREASED [None]
  - BLOOD BILIRUBIN INCREASED [None]
  - BLOOD IMMUNOGLOBULIN G INCREASED [None]
  - CHOLURIA [None]
  - DISCOMFORT [None]
  - GAMMA-GLUTAMYLTRANSFERASE INCREASED [None]
  - HEPATITIS [None]
  - JAUNDICE [None]
  - NAUSEA [None]
